FAERS Safety Report 5041512-X (Version None)
Quarter: 2006Q2

REPORT INFORMATION
  Report Type: 
  Country: None (occurrence: None)
  Receive Date: 20060628
  Receipt Date: 20060615
  Transmission Date: 20061013
  Serious: Yes (Hospitalization)
  Sender: FDA-Public Use
  Company Number: B0426309A

PATIENT
  Age: 28 Year
  Sex: Female

DRUGS (3)
  1. LAMICTAL [Suspect]
     Indication: BIPOLAR I DISORDER
     Dosage: SEE DOSAGE TEXT
  2. SEMISODIUM VALPROATE [Concomitant]
  3. BUPROPION HYDROCHLORIDE [Concomitant]

REACTIONS (8)
  - CONFUSIONAL STATE [None]
  - DROOLING [None]
  - DYSPHAGIA [None]
  - HYPOTENSION [None]
  - SEPSIS [None]
  - SYSTEMIC INFLAMMATORY RESPONSE SYNDROME [None]
  - TACHYCARDIA [None]
  - TOXIC EPIDERMAL NECROLYSIS [None]
